FAERS Safety Report 11772844 (Version 4)
Quarter: 2016Q4

REPORT INFORMATION
  Report Type: Spontaneous
  Country: DK (occurrence: DK)
  Receive Date: 20151124
  Receipt Date: 20161206
  Transmission Date: 20170206
  Serious: Yes (Hospitalization)
  Sender: FDA-Public Use
  Company Number: DK-JNJFOC-20151119836

PATIENT
  Age: 43 Year
  Sex: Male
  Weight: 55 kg

DRUGS (2)
  1. REMICADE [Suspect]
     Active Substance: INFLIXIMAB
     Indication: POLYARTHRITIS
     Dosage: DOSE: 300 (UNITS UNSPECIFIED)
     Route: 042
     Dates: start: 20100702, end: 20150818
  2. REMSIMA [Concomitant]
     Active Substance: INFLIXIMAB
     Indication: POLYARTHRITIS
     Route: 042
     Dates: start: 20150818, end: 20151117

REACTIONS (7)
  - Off label use [Unknown]
  - Lung cancer metastatic [Not Recovered/Not Resolved]
  - Cough [Unknown]
  - Non-small cell lung cancer stage IIIB [Not Recovered/Not Resolved]
  - Dyspnoea [Unknown]
  - Adenocarcinoma [Unknown]
  - Product use issue [Unknown]

NARRATIVE: CASE EVENT DATE: 20100702
